FAERS Safety Report 20603754 (Version 1)
Quarter: 2022Q1

REPORT INFORMATION
  Report Type: Spontaneous
  Country: GB (occurrence: GB)
  Receive Date: 20220316
  Receipt Date: 20220316
  Transmission Date: 20220423
  Serious: Yes (Other)
  Sender: FDA-Public Use
  Company Number: GB-MHRA-MED-202203091028126510-CESKQ

PATIENT
  Age: 50 Year
  Sex: Male

DRUGS (2)
  1. VORICONAZOLE [Suspect]
     Active Substance: VORICONAZOLE
     Indication: Product used for unknown indication
     Dosage: 400 MILLIGRAM, BID , 400MG 2 TWICE A DAY FOR 7 DAYS THEN 1 TWICE A DAY FOR 4 WEEKS
  2. VORICONAZOLE [Suspect]
     Active Substance: VORICONAZOLE
     Dosage: 200 MILLIGRAM, BID

REACTIONS (5)
  - Migraine [Unknown]
  - Visual impairment [Unknown]
  - Hallucination [Unknown]
  - Dizziness [Unknown]
  - Medication error [Unknown]
